FAERS Safety Report 21109237 (Version 3)
Quarter: 2022Q4

REPORT INFORMATION
  Report Type: Spontaneous
  Country: JP (occurrence: JP)
  Receive Date: 20220721
  Receipt Date: 20221027
  Transmission Date: 20230113
  Serious: Yes (Hospitalization, Other)
  Sender: FDA-Public Use
  Company Number: JP-BRISTOL-MYERS SQUIBB COMPANY-2022-051288

PATIENT
  Age: 44 Year
  Sex: Male
  Weight: 56 kg

DRUGS (4)
  1. YERVOY [Suspect]
     Active Substance: IPILIMUMAB
     Indication: Renal cell carcinoma
     Route: 041
     Dates: start: 20210127, end: 20210217
  2. OPDIVO [Suspect]
     Active Substance: NIVOLUMAB
     Indication: Renal cell carcinoma
     Route: 041
     Dates: start: 20210127, end: 20210322
  3. OPDIVO [Suspect]
     Active Substance: NIVOLUMAB
     Dosage: 8?
     Route: 041
     Dates: start: 20210623, end: 20210930
  4. SULFAMETHOXAZOLE\TRIMETHOPRIM [Suspect]
     Active Substance: SULFAMETHOXAZOLE\TRIMETHOPRIM
     Indication: Prophylaxis
     Route: 048

REACTIONS (4)
  - Hepatic function abnormal [Not Recovered/Not Resolved]
  - Hypothyroidism [Recovering/Resolving]
  - Rash maculo-papular [Recovering/Resolving]
  - Dermatitis exfoliative generalised [Unknown]

NARRATIVE: CASE EVENT DATE: 20210301
